FAERS Safety Report 9790251 (Version 1)
Quarter: 2013Q4

REPORT INFORMATION
  Report Type: Spontaneous
  Country: JP (occurrence: JP)
  Receive Date: 20131231
  Receipt Date: 20131231
  Transmission Date: 20140711
  Serious: Yes (Hospitalization)
  Sender: FDA-Public Use
  Company Number: JP-PFIZER INC-2013369327

PATIENT
  Age: 35 Year
  Sex: Female
  Weight: 41 kg

DRUGS (2)
  1. METHYLPREDNISOLONE [Suspect]
     Dosage: 2 MG, DAILY
     Route: 048
  2. TACROLIMUS [Suspect]
     Dosage: 2 MG, DAILY
     Route: 048

REACTIONS (1)
  - Endometrial adenocarcinoma [Recovering/Resolving]
